FAERS Safety Report 6035488-6 (Version None)
Quarter: 2009Q1

REPORT INFORMATION
  Report Type: 
  Country: None (occurrence: None)
  Receive Date: 20090112
  Receipt Date: 20090112
  Transmission Date: 20090719
  Serious: Yes (Other)
  Sender: FDA-Public Use
  Company Number: None

PATIENT
  Age: 63 Year
  Sex: Female
  Weight: 108.8633 kg

DRUGS (1)
  1. REGLAN [Suspect]
     Indication: VOMITING
     Dosage: 1 2 X A DAY PO
     Route: 048
     Dates: start: 19990107, end: 20070306

REACTIONS (3)
  - JAW DISORDER [None]
  - ORAL DISORDER [None]
  - SPEECH DISORDER [None]
